FAERS Safety Report 9010097 (Version 1)
Quarter: 2013Q1

REPORT INFORMATION
  Report Type: Spontaneous
  Country: US (occurrence: US)
  Receive Date: 20130110
  Receipt Date: 20130110
  Transmission Date: 20140127
  Serious: Yes (Hospitalization)
  Sender: FDA-Public Use
  Company Number: US-009507513-1301XAA003189

PATIENT
  Age: 57 Year
  Sex: Female

DRUGS (5)
  1. SINGULAIR [Suspect]
     Indication: ASTHMA
     Dosage: UNK
     Route: 048
  2. SERETIDE DISKUS [Suspect]
  3. ODRIK [Concomitant]
  4. XYZAL [Concomitant]
  5. VENTOLIN (ALBUTEROL) [Concomitant]

REACTIONS (3)
  - Sensory disturbance [Unknown]
  - Hallucination, auditory [Unknown]
  - Irritability [Unknown]
